FAERS Safety Report 8352411-X (Version None)
Quarter: 2012Q2

REPORT INFORMATION
  Report Type: 
  Country: None (occurrence: None)
  Receive Date: 20120511
  Receipt Date: 20120502
  Transmission Date: 20120825
  Serious: Yes (Other)
  Sender: FDA-Public Use
  Company Number: US-ASTRAZENECA-2012SE26383

PATIENT
  Age: 80 Year
  Sex: Female

DRUGS (1)
  1. TOPROL-XL [Suspect]
     Route: 048

REACTIONS (3)
  - VISUAL ACUITY REDUCED [None]
  - INTENTIONAL DRUG MISUSE [None]
  - CARDIAC FIBRILLATION [None]
